FAERS Safety Report 19743519 (Version 5)
Quarter: 2021Q4

REPORT INFORMATION
  Report Type: Report from Study
  Country: US (occurrence: None)
  Receive Date: 20210824
  Receipt Date: 20211210
  Transmission Date: 20220303
  Serious: Yes (Life-Threatening, Hospitalization, Other)
  Sender: FDA-Public Use
  Company Number: US-MERCK HEALTHCARE KGAA-9260193

PATIENT
  Age: 64 Year
  Sex: Male

DRUGS (7)
  1. REBIF [Suspect]
     Active Substance: INTERFERON BETA-1A
     Indication: Multiple sclerosis
     Dosage: REBIJECT II?REBIF PREFILLED SYRINGE
     Route: 058
     Dates: start: 20060613, end: 20210809
  2. REBIF [Suspect]
     Active Substance: INTERFERON BETA-1A
     Dosage: REBIJECT II?REBIF PREFILLED SYRINGE
     Route: 058
     Dates: start: 20211011, end: 2021
  3. REBIF [Suspect]
     Active Substance: INTERFERON BETA-1A
     Route: 058
     Dates: start: 2021
  4. ELIQUIS [Concomitant]
     Active Substance: APIXABAN
     Indication: Atrial fibrillation
  5. METOPROLOL [Concomitant]
     Active Substance: METOPROLOL
     Indication: Hypertension
  6. IRBESARTAN [Concomitant]
     Active Substance: IRBESARTAN
     Indication: Hypertension
  7. TYLENOL [Concomitant]
     Active Substance: ACETAMINOPHEN
     Indication: Premedication

REACTIONS (17)
  - Haemorrhage intracranial [Recovered/Resolved]
  - Postoperative thrombosis [Recovered/Resolved]
  - Hydrocephalus [Recovered/Resolved]
  - Aqueductal stenosis [Unknown]
  - Cerebral ventricle dilatation [Recovering/Resolving]
  - Confusion postoperative [Not Recovered/Not Resolved]
  - Pineal gland cyst [Recovering/Resolving]
  - Hemiparesis [Unknown]
  - Muscle atrophy [Unknown]
  - Slow speech [Recovering/Resolving]
  - Mental disorder [Unknown]
  - Weight decreased [Unknown]
  - Urinary tract infection [Unknown]
  - Memory impairment [Unknown]
  - Cognitive disorder [Unknown]
  - Incontinence [Recovering/Resolving]
  - Product administration interrupted [Unknown]

NARRATIVE: CASE EVENT DATE: 20210101
